FAERS Safety Report 6611703-2 (Version None)
Quarter: 2010Q1

REPORT INFORMATION
  Report Type: 
  Country: None (occurrence: None)
  Receive Date: 20100303
  Receipt Date: 20100222
  Transmission Date: 20100710
  Serious: Yes (Other)
  Sender: FDA-Public Use
  Company Number: US-JNJFOC-20100210947

PATIENT
  Age: 55 Year
  Sex: Female

DRUGS (1)
  1. ARESTIN [Suspect]
     Indication: PERIODONTITIS
     Route: 048

REACTIONS (1)
  - HERPES VIRUS INFECTION [None]
